FAERS Safety Report 12265529 (Version 1)
Quarter: 2016Q2

REPORT INFORMATION
  Report Type: Spontaneous
  Country: US (occurrence: US)
  Receive Date: 20160413
  Receipt Date: 20160413
  Transmission Date: 20160815
  Serious: Yes (Hospitalization, Other)
  Sender: FDA-Public Use
  Company Number: US-TEVA-650796USA

PATIENT
  Age: 62 Year
  Sex: Male
  Weight: 127.12 kg

DRUGS (2)
  1. CORDARONE [Suspect]
     Active Substance: AMIODARONE HYDROCHLORIDE
     Route: 065
  2. AMIODARONE [Suspect]
     Active Substance: AMIODARONE
     Route: 065

REACTIONS (3)
  - Gastric disorder [Unknown]
  - Atrial fibrillation [Recovering/Resolving]
  - Anxiety [Not Recovered/Not Resolved]

NARRATIVE: CASE EVENT DATE: 201603
